FAERS Safety Report 7031948-X (Version None)
Quarter: 2010Q4

REPORT INFORMATION
  Report Type: 
  Country: None (occurrence: None)
  Receive Date: 20101007
  Receipt Date: 20101004
  Transmission Date: 20110411
  Serious: Yes (Death, Hospitalization, Other)
  Sender: FDA-Public Use
  Company Number: US-ELI_LILLY_AND_COMPANY-US200910005607

PATIENT
  Sex: Female

DRUGS (2)
  1. BYETTA [Suspect]
     Dosage: UNK, UNKNOWN
     Route: 065
     Dates: start: 20070401, end: 20080301
  2. TYLENOL (CAPLET) [Concomitant]
     Dosage: UNK, UNKNOWN

REACTIONS (2)
  - PANCREATIC CARCINOMA [None]
  - PANCREATITIS ACUTE [None]
